FAERS Safety Report 4322193-7 (Version None)
Quarter: 2004Q1

REPORT INFORMATION
  Report Type: 
  Country: None (occurrence: None)
  Receive Date: 20040319
  Receipt Date: 20040310
  Transmission Date: 20041129
  Serious: Yes (Life-Threatening, Other)
  Sender: FDA-Public Use
  Company Number: 230169K04USA

PATIENT
  Age: 22 Year
  Sex: Male
  Weight: 89 kg

DRUGS (3)
  1. REBIF [Suspect]
     Indication: MULTIPLE SCLEROSIS
     Dosage: 44 MCG, 3 IN 1 WEEKS, SUBCUTANEOUS
     Route: 058
     Dates: start: 20030515
  2. CARBAMAZEPINE [Concomitant]
  3. LEVETIRACETAM [Concomitant]

REACTIONS (6)
  - GRAND MAL CONVULSION [None]
  - LOSS OF CONSCIOUSNESS [None]
  - PARTIAL SEIZURES [None]
  - RASH [None]
  - REFUSAL OF TREATMENT BY PATIENT [None]
  - SEDATION [None]
